FAERS Safety Report 17992696 (Version 1)
Quarter: 2020Q3

REPORT INFORMATION
  Report Type: Spontaneous
  Country: SA (occurrence: SA)
  Receive Date: 20200708
  Receipt Date: 20200708
  Transmission Date: 20201103
  Serious: Yes (Life-Threatening, Hospitalization, Other)
  Sender: FDA-Public Use
  Company Number: SA-MACLEODS PHARMACEUTICALS US LTD-MAC2020026959

PATIENT

DRUGS (3)
  1. SILDENAFIL. [Suspect]
     Active Substance: SILDENAFIL
     Dosage: 200 MILLIGRAM
     Route: 065
  2. FU YAUAN CHUN CAPSULES [HERBALS] [Suspect]
     Active Substance: HERBALS
     Indication: APHRODISIAC THERAPY
     Dosage: UNK, 2+2 CAPSULES OVER 2DAYS, THAT EACH CAPSULE (0.5G) CONTAINED 95 MG SILDENAFIL A;PNG WITH OSTHOLE
     Route: 065
  3. SILDENAFIL. [Suspect]
     Active Substance: SILDENAFIL
     Indication: APHRODISIAC THERAPY
     Dosage: 100 MILLIGRAM
     Route: 065

REACTIONS (3)
  - Septic shock [Recovered/Resolved]
  - Device related infection [Recovered/Resolved]
  - Toxic epidermal necrolysis [Recovered/Resolved]
